FAERS Safety Report 4377925-9 (Version None)
Quarter: 2004Q2

REPORT INFORMATION
  Report Type: 
  Country: None (occurrence: None)
  Receive Date: 20040615
  Receipt Date: 20040615
  Transmission Date: 20050107
  Serious: Yes (Hospitalization, Disabling)
  Sender: FDA-Public Use
  Company Number: None

PATIENT
  Age: 52 Year
  Sex: Male
  Weight: 113.3993 kg

DRUGS (1)
  1. EFFEXOR XR [Suspect]
     Indication: DEPRESSION
     Dosage: 2 DAILY
     Dates: start: 20020301, end: 20040510

REACTIONS (16)
  - ANGER [None]
  - ARTHRALGIA [None]
  - BRAIN DAMAGE [None]
  - CRYING [None]
  - DRUG INEFFECTIVE [None]
  - FLASHBACK [None]
  - IMPAIRED WORK ABILITY [None]
  - MOOD ALTERED [None]
  - MYALGIA [None]
  - NERVOUS SYSTEM DISORDER [None]
  - NIGHTMARE [None]
  - PAIN [None]
  - POST PROCEDURAL COMPLICATION [None]
  - POSTOPERATIVE INFECTION [None]
  - RED BLOOD CELL SEDIMENTATION RATE INCREASED [None]
  - SUICIDAL IDEATION [None]
